FAERS Safety Report 8934879 (Version 2)
Quarter: 2012Q4

REPORT INFORMATION
  Report Type: Report from Study
  Country: CA (occurrence: CA)
  Receive Date: 20121129
  Receipt Date: 20121221
  Transmission Date: 20130627
  Serious: Yes (Life-Threatening, Hospitalization, Other)
  Sender: FDA-Public Use
  Company Number: CA-CELGENEUS-028-21880-12102774

PATIENT
  Age: 72 Year
  Sex: Male
  Weight: 88.9 kg

DRUGS (34)
  1. REVLIMID [Suspect]
     Indication: MULTIPLE MYELOMA
     Dosage: 25 Milligram
     Route: 048
     Dates: start: 20111013, end: 20120724
  2. REVLIMID [Suspect]
     Dosage: 10 Milligram
     Route: 048
     Dates: start: 20120829, end: 20120918
  3. DEXAMETHASONE [Suspect]
     Indication: MULTIPLE MYELOMA
     Dosage: 40 Milligram
     Route: 065
     Dates: start: 20111013, end: 20120919
  4. AMOXICILLIN + CLAVULINATE [Concomitant]
     Indication: SINUS INFECTION
     Dosage: 750 Milligram
     Route: 048
     Dates: start: 20120912, end: 20120919
  5. AMOXICILLIN + CLAVULINATE [Concomitant]
     Dosage: 187.5 Milligram
     Route: 048
     Dates: start: 20120912, end: 20120919
  6. BETAMETHASONE [Concomitant]
     Indication: RASH
     Route: 061
     Dates: start: 20111116, end: 20121011
  7. BETAMETHASONE [Concomitant]
     Indication: ITCH
  8. CALCIUM [Concomitant]
     Indication: DRUG THERAPY
     Dosage: 1200 Milligram
     Route: 048
     Dates: start: 2009
  9. CALCIUM [Concomitant]
     Dosage: 600 Milligram
     Route: 048
  10. ASA [Concomitant]
     Indication: ANTICOAGULANT THERAPY
     Dosage: 81 Milligram
     Route: 048
     Dates: start: 20111206
  11. ASA [Concomitant]
     Indication: ANTIPLATELET THERAPY
     Dosage: 81 Milligram
     Route: 048
     Dates: start: 20120703, end: 20120925
  12. ASA [Concomitant]
     Indication: THROMBOSIS PROPHYLAXIS
  13. GAVISCON [Concomitant]
     Indication: FLATULENCE
     Route: 048
     Dates: start: 20120706, end: 20121018
  14. HEPARIN [Concomitant]
     Indication: DVT PROPHYLAXIS
     Dosage: 5000 units
     Route: 058
     Dates: start: 20121022, end: 20121030
  15. HYDROCORTISONE [Concomitant]
     Indication: HYPOTHYROIDISM
     Dosage: 300 Milligram
     Route: 041
     Dates: start: 20121017, end: 20121025
  16. LEVAQUIN [Concomitant]
     Indication: FEVER
     Dosage: 750 Milligram
     Route: 041
     Dates: start: 20121018, end: 20121024
  17. LEVOTHYROXINE [Concomitant]
     Indication: HYPOTHYROIDISM
     Dosage: 100 Microgram
     Route: 048
     Dates: start: 20121017
  18. LOSEC [Concomitant]
     Indication: PROPHYLAXIS
     Dosage: 20 Milligram
     Route: 048
     Dates: start: 20111012
  19. LOSEC [Concomitant]
     Indication: DRUG THERAPY
  20. PAMIDRONATE [Concomitant]
     Indication: PROPHYLAXIS
     Dosage: 90 Milligram
     Route: 041
     Dates: start: 20111116
  21. PHOSPHATE NOVARTIS [Concomitant]
     Indication: HYPOPHOSPHATEMIA
     Dosage: 2 Tablet
     Route: 048
     Dates: start: 20120327, end: 20121017
  22. PIPERACILLIN/TAZOBACTAM [Concomitant]
     Indication: FEVER
     Dosage: 3.375 Gram
     Route: 041
     Dates: start: 20121017, end: 20121018
  23. PREDNISONE [Concomitant]
     Indication: HYPOTHYROIDISM
     Dosage: 10 Milligram
     Route: 048
     Dates: start: 20121025, end: 20121030
  24. SENOKOT-S [Concomitant]
     Indication: CONSTIPATION
     Dosage: 1-2 tablets
     Route: 048
     Dates: start: 20120823
  25. SEPTRA DS [Concomitant]
     Indication: PNEUMOCYSTIS CARINII PROPHYLAXIS
     Dosage: 2 Tablet
     Route: 048
     Dates: start: 20111015, end: 20121017
  26. SEPTRA DS [Concomitant]
     Indication: ANTIBIOTIC PROPHYLAXIS
  27. TYLENOL ES [Concomitant]
     Indication: FEVER
     Dosage: 500 Milligram
     Route: 048
     Dates: start: 20111125
  28. TYLENOL ES [Concomitant]
     Indication: PAIN
  29. VALACYCLOVIR [Concomitant]
     Indication: ANTIVIRAL PROPHYLAXIS
     Dosage: 500 Milligram
     Route: 048
     Dates: start: 20111012
  30. VALACYCLOVIR [Concomitant]
     Indication: ANTIVIRAL PROPHYLAXIS
  31. VITAMIN B12 [Concomitant]
     Indication: VITAMIN B12 DEFICIENCY
     Dosage: 1000 Microgram
     Route: 048
     Dates: start: 20121018
  32. VITAMIN B12 [Concomitant]
     Dosage: 1000 IU (International Unit)
     Route: 048
  33. VITAMIN D [Concomitant]
     Indication: DRUG THERAPY
     Dosage: 3000 IU (International Unit)
     Route: 048
     Dates: start: 2009
  34. VITAMIN D [Concomitant]
     Dosage: 1000 IU (International Unit)
     Route: 048

REACTIONS (1)
  - Myxoedema coma [Recovered/Resolved]
